FAERS Safety Report 10726771 (Version 1)
Quarter: 2015Q1

REPORT INFORMATION
  Report Type: Spontaneous
  Country: US (occurrence: US)
  Receive Date: 20150121
  Receipt Date: 20150121
  Transmission Date: 20150721
  Serious: No
  Sender: FDA-Public Use
  Company Number: US-PFIZER INC-2015021472

PATIENT
  Age: 54 Year
  Sex: Female

DRUGS (1)
  1. ADVIL [Suspect]
     Active Substance: IBUPROFEN
     Indication: DIABETIC NEUROPATHY
     Dosage: 200 MG, UNK
     Dates: start: 20141205, end: 20150105

REACTIONS (1)
  - Drug ineffective [Unknown]
